FAERS Safety Report 23259635 (Version 4)
Quarter: 2024Q3

REPORT INFORMATION
  Report Type: Spontaneous
  Country: JP (occurrence: JP)
  Receive Date: 20231204
  Receipt Date: 20240802
  Transmission Date: 20241017
  Serious: Yes (Other)
  Sender: ARGENX BVBA
  Company Number: JP-ARGENX-2023-ARGX-JP004080

PATIENT

DRUGS (3)
  1. EFGARTIGIMOD ALFA [Suspect]
     Active Substance: EFGARTIGIMOD ALFA
     Indication: Myasthenia gravis
     Dosage: UNK
     Route: 042
  2. HUMAN IMMUNOGLOBULIN G [Suspect]
     Active Substance: HUMAN IMMUNOGLOBULIN G
     Indication: Product used for unknown indication
     Route: 065
  3. UNSPECIFIED INGREDIENT [Concomitant]
     Active Substance: UNSPECIFIED INGREDIENT
     Indication: Myasthenia gravis
     Dosage: UNK
     Route: 065

REACTIONS (24)
  - Anaphylactic reaction [Unknown]
  - Meningitis [Unknown]
  - Myasthenia gravis [Unknown]
  - Eyelid ptosis [Unknown]
  - Laryngeal discomfort [Unknown]
  - Pyrexia [Unknown]
  - Dysphagia [Unknown]
  - Headache [Unknown]
  - Condition aggravated [Unknown]
  - Dysphagia [Unknown]
  - Malaise [Unknown]
  - Malaise [Unknown]
  - Arthralgia [Unknown]
  - Eyelid ptosis [Unknown]
  - Dysstasia [Unknown]
  - Malaise [Unknown]
  - Neck pain [Unknown]
  - Headache [Unknown]
  - Nasopharyngitis [Unknown]
  - Headache [Unknown]
  - Influenza [Unknown]
  - Drug ineffective [Unknown]
  - Therapeutic product effect incomplete [Unknown]
  - Therapeutic response shortened [Unknown]

NARRATIVE: CASE EVENT DATE: 20230101
